FAERS Safety Report 12938323 (Version 1)
Quarter: 2016Q4

REPORT INFORMATION
  Report Type: Spontaneous
  Country: US (occurrence: US)
  Receive Date: 20161114
  Receipt Date: 20161114
  Transmission Date: 20170207
  Serious: Yes (Other)
  Sender: FDA-Public Use
  Company Number: US-TEVA-711631USA

PATIENT
  Age: 55 Year
  Sex: Male
  Weight: 99.88 kg

DRUGS (1)
  1. FENTANYL. [Suspect]
     Active Substance: FENTANYL
     Indication: PAIN
     Dosage: MCG 5
     Route: 065
     Dates: start: 201610

REACTIONS (6)
  - Product formulation issue [Unknown]
  - Angina pectoris [Unknown]
  - Headache [Unknown]
  - Myocardial infarction [Unknown]
  - Drug ineffective [Unknown]
  - Product quality issue [Unknown]

NARRATIVE: CASE EVENT DATE: 2015
